FAERS Safety Report 9675574 (Version 1)
Quarter: 2013Q4

REPORT INFORMATION
  Report Type: Spontaneous
  Country: US (occurrence: US)
  Receive Date: 20131106
  Receipt Date: 20131106
  Transmission Date: 20140711
  Serious: No
  Sender: FDA-Public Use
  Company Number: US-AMGEN-USASP2013067505

PATIENT
  Age: 53 Year
  Sex: Male

DRUGS (2)
  1. ENBREL [Suspect]
     Indication: RHEUMATOID ARTHRITIS
     Dosage: 25 MG, 2 TIMES/WK
     Route: 065
     Dates: start: 19991101
  2. METHOTREXATE [Concomitant]
     Dosage: 2.5 MG, QWK, EIGHT TABLETS

REACTIONS (8)
  - Inflammatory marker increased [Unknown]
  - Exposure to chemical pollution [Unknown]
  - Device damage [Unknown]
  - Tooth erosion [Unknown]
  - Contusion [Not Recovered/Not Resolved]
  - Chemical injury [Not Recovered/Not Resolved]
  - Throat irritation [Not Recovered/Not Resolved]
  - Cough [Not Recovered/Not Resolved]
